FAERS Safety Report 10261351 (Version 2)
Quarter: 2014Q2

REPORT INFORMATION
  Report Type: Report from Study
  Country: US (occurrence: US)
  Receive Date: 20140626
  Receipt Date: 20140626
  Transmission Date: 20141212
  Serious: Yes (Hospitalization)
  Sender: FDA-Public Use
  Company Number: US-ROCHE-1201187

PATIENT
  Sex: Female

DRUGS (2)
  1. CELLCEPT [Suspect]
     Indication: ARTERITIS
     Dosage: MOST RECENT DOSE: ON OCT/2013
     Route: 048
  2. CELLCEPT [Suspect]
     Indication: POLYARTERITIS NODOSA
     Route: 048

REACTIONS (12)
  - Infection [Unknown]
  - Neurological symptom [Unknown]
  - Tremor [Unknown]
  - Skin burning sensation [Unknown]
  - Cough [Unknown]
  - Skin lesion [Unknown]
  - Upper respiratory tract infection [Recovering/Resolving]
  - Pruritus [Unknown]
  - Transient ischaemic attack [Unknown]
  - Confusional state [Unknown]
  - Unevaluable event [Unknown]
  - Visual impairment [Unknown]
